FAERS Safety Report 16186707 (Version 4)
Quarter: 2019Q2

REPORT INFORMATION
  Report Type: Report from Study
  Country: US (occurrence: US)
  Receive Date: 20190411
  Receipt Date: 20190628
  Transmission Date: 20190711
  Serious: Yes (Hospitalization)
  Sender: FDA-Public Use
  Company Number: US-ACTELION-A-NJ2019-188781

PATIENT
  Age: 65 Year
  Sex: Female
  Weight: 46.71 kg

DRUGS (6)
  1. OPSUMIT [Suspect]
     Active Substance: MACITENTAN
     Dosage: UNK
     Route: 048
  2. VELETRI [Concomitant]
     Active Substance: EPOPROSTENOL
     Indication: PULMONARY ARTERIAL HYPERTENSION
     Dosage: 12 NG/KG, PER MIN
     Route: 042
     Dates: start: 2019, end: 2019
  3. NIFEDIPINE. [Concomitant]
     Active Substance: NIFEDIPINE
  4. OPSUMIT [Suspect]
     Active Substance: MACITENTAN
     Indication: PULMONARY ARTERIAL HYPERTENSION
     Dosage: UNK
     Route: 048
  5. UPTRAVI [Suspect]
     Active Substance: SELEXIPAG
     Indication: PULMONARY ARTERIAL HYPERTENSION
     Dosage: 1000 MCG, BID
     Route: 048
     Dates: end: 201904
  6. SILDENAFIL. [Concomitant]
     Active Substance: SILDENAFIL

REACTIONS (10)
  - Hospitalisation [Unknown]
  - Paracentesis [Unknown]
  - Intestinal perforation [Recovered/Resolved]
  - Abdominal pain upper [Recovered/Resolved]
  - Discharge [Recovered/Resolved]
  - Haemorrhoid operation [Unknown]
  - Influenza [Unknown]
  - Gastrointestinal surgery [Recovered/Resolved]
  - Post procedural complication [Unknown]
  - Intestinal fistula repair [Unknown]

NARRATIVE: CASE EVENT DATE: 201904
